FAERS Safety Report 6135338-3 (Version None)
Quarter: 2009Q1

REPORT INFORMATION
  Report Type: 
  Country: None (occurrence: None)
  Receive Date: 20090327
  Receipt Date: 20090217
  Transmission Date: 20090719
  Serious: Yes (Hospitalization)
  Sender: FDA-Public Use
  Company Number: US-BRISTOL-MYERS SQUIBB COMPANY-14510465

PATIENT
  Age: 80 Year
  Sex: Male
  Weight: 105 kg

DRUGS (1)
  1. DASATINIB [Suspect]
     Indication: PROSTATE CANCER
     Dates: start: 20080923, end: 20081002

REACTIONS (2)
  - CARDIAC FAILURE CONGESTIVE [None]
  - PLEURAL EFFUSION [None]
